FAERS Safety Report 12907961 (Version 2)
Quarter: 2017Q1

REPORT INFORMATION
  Report Type: Report from Study
  Country: US (occurrence: US)
  Receive Date: 20161103
  Receipt Date: 20170102
  Transmission Date: 20170428
  Serious: Yes (Death, Other)
  Sender: FDA-Public Use
  Company Number: PHEH2016US028114

PATIENT
  Age: 8 Year
  Sex: Male
  Weight: 27.1 kg

DRUGS (1)
  1. ILARIS [Suspect]
     Active Substance: CANAKINUMAB
     Indication: JUVENILE IDIOPATHIC ARTHRITIS
     Dosage: 136 MG, EVERY 4 WEEKS
     Route: 058
     Dates: start: 201508, end: 20161028

REACTIONS (4)
  - Histiocytosis haematophagic [Unknown]
  - Pyrexia [Unknown]
  - Death [Fatal]
  - Gene mutation [Unknown]

NARRATIVE: CASE EVENT DATE: 20161214
